FAERS Safety Report 8854522 (Version 1)
Quarter: 2012Q4

REPORT INFORMATION
  Report Type: 
  Country: US (occurrence: US)
  Receive Date: 20121023
  Receipt Date: 20121023
  Transmission Date: 20130627
  Serious: No
  Sender: FDA-Public Use
  Company Number: US-ASTRAZENECA-2012SE77285

PATIENT
  Age: 68 Year
  Sex: Female
  Weight: 67.1 kg

DRUGS (6)
  1. ARIMIDEX [Suspect]
     Indication: BREAST CANCER
     Route: 048
     Dates: start: 200712, end: 201204
  2. ARIMIDEX [Suspect]
     Indication: BREAST CANCER
     Dosage: GENERIC ANASTROZOLE
     Route: 048
     Dates: start: 201204
  3. NASONEX [Concomitant]
     Indication: NASAL CONGESTION
  4. VITAMINS [Concomitant]
  5. CALCIUM [Concomitant]
     Indication: OSTEOPOROSIS
  6. PROLIA [Concomitant]
     Indication: OSTEOPOROSIS

REACTIONS (5)
  - Weight increased [Unknown]
  - Abdominal distension [Unknown]
  - Fluid retention [Unknown]
  - Osteoporosis [Unknown]
  - Intentional drug misuse [Unknown]
